FAERS Safety Report 13105490 (Version 2)
Quarter: 2017Q1

REPORT INFORMATION
  Report Type: Spontaneous
  Country: US (occurrence: US)
  Receive Date: 20170111
  Receipt Date: 20170118
  Transmission Date: 20170428
  Serious: Yes (Other)
  Sender: FDA-Public Use
  Company Number: US-CELGENEUS-USA-2017011458

PATIENT
  Sex: Female
  Weight: 86.26 kg

DRUGS (2)
  1. OTEZLA [Suspect]
     Active Substance: APREMILAST
     Indication: PSORIASIS
     Route: 048
  2. ENBREL [Suspect]
     Active Substance: ETANERCEPT
     Indication: PSORIATIC ARTHROPATHY
     Dosage: 50 MILLIGRAM
     Route: 065
     Dates: start: 2015

REACTIONS (4)
  - Bursitis [Unknown]
  - Abdominal discomfort [Unknown]
  - Psoriatic arthropathy [Not Recovered/Not Resolved]
  - Dyspepsia [Unknown]
